FAERS Safety Report 6478534-8 (Version None)
Quarter: 2009Q4

REPORT INFORMATION
  Report Type: 
  Country: None (occurrence: None)
  Receive Date: 20091207
  Receipt Date: 20091123
  Transmission Date: 20100525
  Serious: Yes (Other)
  Sender: FDA-Public Use
  Company Number: US-MYLANLABS-2009S1020229

PATIENT
  Age: 48 Year
  Sex: Female

DRUGS (10)
  1. DEPAKENE [Suspect]
     Indication: SCHIZOPHRENIA
     Dosage: 1750 MG/DAY
  2. DIPHENHYDRAMINE HCL [Suspect]
  3. ROBITUSSIN DM /00288801/ [Suspect]
     Indication: COUGH
  4. HALOPERIDOL [Suspect]
     Indication: PARANOIA
  5. HALOPERIDOL [Suspect]
  6. CLONAZEPAM [Suspect]
     Indication: ANXIETY
     Route: 048
  7. CLONAZEPAM [Suspect]
  8. RISPERDAL CONSTA [Concomitant]
     Route: 030
  9. BENZATROPINE [Concomitant]
  10. QUETIAPINE [Concomitant]
     Dosage: 25MG DAILY

REACTIONS (3)
  - LETHARGY [None]
  - NEUROLOGICAL SYMPTOM [None]
  - SEDATION [None]
